FAERS Safety Report 4568406-8 (Version None)
Quarter: 2005Q1

REPORT INFORMATION
  Report Type: 
  Country: None (occurrence: None)
  Receive Date: 20050131
  Receipt Date: 20050117
  Transmission Date: 20050727
  Serious: Yes (Hospitalization, Other)
  Sender: FDA-Public Use
  Company Number: HQWYE655017JAN05

PATIENT
  Age: 57 Year
  Sex: Female

DRUGS (9)
  1. CORDARONE [Suspect]
     Indication: ATRIAL FIBRILLATION
     Dosage: 200 MG 1X PER 1 DAY
     Route: 048
     Dates: start: 20030101
  2. ALDACTONE [Suspect]
     Dosage: 1 DOSAGE FORM 1X PER 1 DAY
     Route: 048
     Dates: start: 20030101
  3. DIGOXIN [Suspect]
     Dosage: 1 DOSAGE FORM 1X PER 1 DAY
     Route: 048
     Dates: start: 20040401, end: 20040428
  4. ZESTRIL [Concomitant]
  5. LASILIX (FUROSEMIDE) [Concomitant]
  6. FERROUS SULFATE TAB [Concomitant]
  7. FOLIC ACID [Concomitant]
  8. ALLOPURINOL [Concomitant]
  9. PREVISCAN (FLUINDIONE) [Concomitant]

REACTIONS (13)
  - ATRIAL FIBRILLATION [None]
  - BRONCHOPNEUMOPATHY [None]
  - CARDIOACTIVE DRUG LEVEL ABOVE THERAPEUTIC [None]
  - CHROMATOPSIA [None]
  - DRUG INTERACTION [None]
  - HALLUCINATION [None]
  - HEADACHE [None]
  - INFECTION [None]
  - INTERNATIONAL NORMALISED RATIO INCREASED [None]
  - MYALGIA [None]
  - NAUSEA [None]
  - OVERDOSE [None]
  - SCOTOMA [None]
